FAERS Safety Report 11993480 (Version 5)
Quarter: 2017Q4

REPORT INFORMATION
  Report Type: Spontaneous
  Country: US (occurrence: US)
  Receive Date: 20160203
  Receipt Date: 20171011
  Transmission Date: 20180320
  Serious: Yes (Other)
  Sender: FDA-Public Use
  Company Number: US-SA-2016SA013553

PATIENT
  Age: 73 Year
  Sex: Female
  Weight: 99.79 kg

DRUGS (56)
  1. PRALUENT [Suspect]
     Active Substance: ALIROCUMAB
     Indication: BLOOD TRIGLYCERIDES INCREASED
     Route: 058
     Dates: start: 20160309
  2. ALIROCUMAB PREFILLED PEN [Suspect]
     Active Substance: ALIROCUMAB
     Indication: BLOOD TRIGLYCERIDES INCREASED
     Dates: start: 20151230, end: 20160113
  3. ALIROCUMAB PREFILLED PEN [Suspect]
     Active Substance: ALIROCUMAB
     Indication: BLOOD TRIGLYCERIDES INCREASED
     Dates: start: 20151230, end: 20160113
  4. ASPIRIN. [Concomitant]
     Active Substance: ASPIRIN
     Indication: CARDIAC DISORDER
     Route: 065
  5. PRALUENT [Suspect]
     Active Substance: ALIROCUMAB
     Indication: BLOOD TRIGLYCERIDES INCREASED
     Dosage: 1 ML DOSAGE DOSE:75 MILLIGRAM(S)/MILLILITRE
     Route: 058
     Dates: start: 20151230, end: 20160113
  6. PRALUENT [Suspect]
     Active Substance: ALIROCUMAB
     Indication: HYPERCHOLESTEROLAEMIA
     Dosage: 1 ML DOSAGE DOSE:75 MILLIGRAM(S)/MILLILITRE
     Route: 058
     Dates: start: 20151230, end: 20160113
  7. PRALUENT [Suspect]
     Active Substance: ALIROCUMAB
     Indication: BLOOD TRIGLYCERIDES INCREASED
     Dosage: 1 ML DOSAGE DOSE:75 MILLIGRAM(S)/MILLILITRE
     Route: 058
     Dates: start: 20151230, end: 20160113
  8. PRALUENT [Suspect]
     Active Substance: ALIROCUMAB
     Indication: HYPERLIPIDAEMIA
     Dosage: 1 ML DOSAGE DOSE:75 MILLIGRAM(S)/MILLILITRE
     Route: 058
     Dates: start: 20151230, end: 20160113
  9. PRALUENT [Suspect]
     Active Substance: ALIROCUMAB
     Indication: HYPERCHOLESTEROLAEMIA
     Route: 058
     Dates: start: 20160309
  10. FENOFIBRATE. [Concomitant]
     Active Substance: FENOFIBRATE
     Indication: HYPERTENSION
     Route: 065
  11. TOPROL XL [Concomitant]
     Active Substance: METOPROLOL SUCCINATE
     Indication: HYPERTENSION
     Route: 065
  12. PRALUENT [Suspect]
     Active Substance: ALIROCUMAB
     Indication: HYPERCHOLESTEROLAEMIA
     Dosage: 1 ML DOSAGE DOSE:75 MILLIGRAM(S)/MILLILITRE
     Route: 058
     Dates: start: 20151230, end: 20160113
  13. PRALUENT [Suspect]
     Active Substance: ALIROCUMAB
     Indication: HYPERLIPIDAEMIA
     Dosage: 1 ML DOSAGE DOSE:75 MILLIGRAM(S)/MILLILITRE
     Route: 058
     Dates: start: 20151230, end: 20160113
  14. PRALUENT [Suspect]
     Active Substance: ALIROCUMAB
     Indication: HYPERCHOLESTEROLAEMIA
     Dosage: 1 ML DOSAGE DOSE:75 MILLIGRAM(S)/MILLILITRE
     Route: 058
     Dates: start: 20151230, end: 20160113
  15. ALIROCUMAB PREFILLED PEN [Suspect]
     Active Substance: ALIROCUMAB
     Indication: BLOOD TRIGLYCERIDES INCREASED
     Dates: start: 20160309
  16. ALIROCUMAB PREFILLED PEN [Suspect]
     Active Substance: ALIROCUMAB
     Indication: BLOOD TRIGLYCERIDES INCREASED
     Dates: start: 20160309
  17. CELEBREX [Concomitant]
     Active Substance: CELECOXIB
     Indication: ARTHRITIS
     Route: 065
  18. CARAFATE [Concomitant]
     Active Substance: SUCRALFATE
     Indication: GASTRIC ULCER
     Route: 065
  19. PRALUENT [Suspect]
     Active Substance: ALIROCUMAB
     Indication: BLOOD TRIGLYCERIDES INCREASED
     Dosage: 1 ML DOSAGE DOSE:75 MILLIGRAM(S)/MILLILITRE
     Route: 058
     Dates: start: 20151230, end: 20160113
  20. PRALUENT [Suspect]
     Active Substance: ALIROCUMAB
     Indication: HYPERLIPIDAEMIA
     Route: 058
     Dates: start: 20160309
  21. PRALUENT [Suspect]
     Active Substance: ALIROCUMAB
     Indication: BLOOD TRIGLYCERIDES INCREASED
     Route: 058
     Dates: start: 20160309
  22. PRALUENT [Suspect]
     Active Substance: ALIROCUMAB
     Indication: HYPERLIPIDAEMIA
     Route: 058
     Dates: start: 20160309
  23. PRALUENT [Suspect]
     Active Substance: ALIROCUMAB
     Indication: HYPERLIPIDAEMIA
     Route: 058
     Dates: start: 20160309
  24. ALIROCUMAB PREFILLED PEN [Suspect]
     Active Substance: ALIROCUMAB
     Indication: BLOOD TRIGLYCERIDES INCREASED
     Dates: start: 20151230, end: 20160113
  25. ALIROCUMAB PREFILLED PEN [Suspect]
     Active Substance: ALIROCUMAB
     Indication: HYPERLIPIDAEMIA
     Dates: start: 20151230, end: 20160113
  26. ALIROCUMAB PREFILLED PEN [Suspect]
     Active Substance: ALIROCUMAB
     Indication: HYPERLIPIDAEMIA
     Dates: start: 20160309
  27. PRALUENT [Suspect]
     Active Substance: ALIROCUMAB
     Indication: HYPERLIPIDAEMIA
     Dosage: 1 ML DOSAGE DOSE:75 MILLIGRAM(S)/MILLILITRE
     Route: 058
     Dates: start: 20151230, end: 20160113
  28. PRALUENT [Suspect]
     Active Substance: ALIROCUMAB
     Indication: HYPERLIPIDAEMIA
     Dosage: 1 ML DOSAGE DOSE:75 MILLIGRAM(S)/MILLILITRE
     Route: 058
     Dates: start: 20151230, end: 20160113
  29. PRALUENT [Suspect]
     Active Substance: ALIROCUMAB
     Indication: BLOOD TRIGLYCERIDES INCREASED
     Dosage: 1 ML DOSAGE DOSE:75 MILLIGRAM(S)/MILLILITRE
     Route: 058
     Dates: start: 20151230, end: 20160113
  30. ALIROCUMAB PREFILLED PEN [Suspect]
     Active Substance: ALIROCUMAB
     Indication: HYPERLIPIDAEMIA
     Dates: start: 20151230, end: 20160113
  31. ALIROCUMAB PREFILLED PEN [Suspect]
     Active Substance: ALIROCUMAB
     Indication: HYPERCHOLESTEROLAEMIA
     Dates: start: 20160309
  32. ALIROCUMAB PREFILLED PEN [Suspect]
     Active Substance: ALIROCUMAB
     Indication: HYPERLIPIDAEMIA
     Dates: start: 20151230, end: 20160113
  33. ALIROCUMAB PREFILLED PEN [Suspect]
     Active Substance: ALIROCUMAB
     Indication: HYPERLIPIDAEMIA
     Dates: start: 20151230, end: 20160113
  34. ALIROCUMAB PREFILLED PEN [Suspect]
     Active Substance: ALIROCUMAB
     Indication: BLOOD TRIGLYCERIDES INCREASED
     Dates: start: 20160309
  35. ALIROCUMAB PREFILLED PEN [Suspect]
     Active Substance: ALIROCUMAB
     Indication: HYPERCHOLESTEROLAEMIA
     Dates: start: 20160309
  36. ALIROCUMAB PREFILLED PEN [Suspect]
     Active Substance: ALIROCUMAB
     Indication: BLOOD TRIGLYCERIDES INCREASED
     Dates: start: 20151230, end: 20160113
  37. ALIROCUMAB PREFILLED PEN [Suspect]
     Active Substance: ALIROCUMAB
     Indication: HYPERCHOLESTEROLAEMIA
     Dates: start: 20151230, end: 20160113
  38. ALIROCUMAB PREFILLED PEN [Suspect]
     Active Substance: ALIROCUMAB
     Indication: HYPERCHOLESTEROLAEMIA
     Dates: start: 20151230, end: 20160113
  39. ALIROCUMAB PREFILLED PEN [Suspect]
     Active Substance: ALIROCUMAB
     Indication: HYPERCHOLESTEROLAEMIA
     Dates: start: 20151230, end: 20160113
  40. PREVACID [Concomitant]
     Active Substance: LANSOPRAZOLE
     Indication: GASTRIC ULCER
     Route: 065
  41. FOLTANX [Concomitant]
     Indication: NEUROPATHY PERIPHERAL
     Route: 065
  42. PRALUENT [Suspect]
     Active Substance: ALIROCUMAB
     Indication: HYPERCHOLESTEROLAEMIA
     Route: 058
     Dates: start: 20160309
  43. PRALUENT [Suspect]
     Active Substance: ALIROCUMAB
     Indication: HYPERCHOLESTEROLAEMIA
     Route: 058
     Dates: start: 20160309
  44. ALIROCUMAB PREFILLED PEN [Suspect]
     Active Substance: ALIROCUMAB
     Indication: HYPERCHOLESTEROLAEMIA
     Dates: start: 20151230, end: 20160113
  45. ALIROCUMAB PREFILLED PEN [Suspect]
     Active Substance: ALIROCUMAB
     Indication: HYPERLIPIDAEMIA
     Dates: start: 20160309
  46. ALIROCUMAB PREFILLED PEN [Suspect]
     Active Substance: ALIROCUMAB
     Indication: HYPERLIPIDAEMIA
     Dates: start: 20160309
  47. FUROSEMIDE. [Concomitant]
     Active Substance: FUROSEMIDE
     Indication: CARDIAC DISORDER
     Route: 065
  48. VITAMIN E [Concomitant]
     Active Substance: .ALPHA.-TOCOPHEROL
     Indication: CARDIAC DISORDER
     Route: 065
  49. LEVOTHYROXINE. [Concomitant]
     Active Substance: LEVOTHYROXINE
     Indication: HYPOTHYROIDISM
     Route: 065
  50. PRALUENT [Suspect]
     Active Substance: ALIROCUMAB
     Indication: HYPERCHOLESTEROLAEMIA
     Dosage: 1 ML DOSAGE DOSE:75 MILLIGRAM(S)/MILLILITRE
     Route: 058
     Dates: start: 20151230, end: 20160113
  51. PRALUENT [Suspect]
     Active Substance: ALIROCUMAB
     Indication: BLOOD TRIGLYCERIDES INCREASED
     Route: 058
     Dates: start: 20160309
  52. ALIROCUMAB PREFILLED PEN [Suspect]
     Active Substance: ALIROCUMAB
     Indication: HYPERCHOLESTEROLAEMIA
     Dates: start: 20160309
  53. LOSARTAN. [Concomitant]
     Active Substance: LOSARTAN
     Indication: HYPERTENSION
     Route: 065
  54. TARKA [Concomitant]
     Active Substance: TRANDOLAPRIL\VERAPAMIL HYDROCHLORIDE
     Indication: HYPERTENSION
     Dosage: DOSE:4MG/240MG
     Route: 065
  55. KLOR-CON [Concomitant]
     Active Substance: POTASSIUM CHLORIDE
     Indication: MINERAL SUPPLEMENTATION
     Route: 065
  56. TOPROL XL [Concomitant]
     Active Substance: METOPROLOL SUCCINATE
     Indication: BLOOD TRIGLYCERIDES INCREASED
     Route: 065

REACTIONS (16)
  - Postmenopausal haemorrhage [Unknown]
  - Injection site hypoaesthesia [Recovered/Resolved]
  - Upper limb fracture [Unknown]
  - Menorrhagia [Unknown]
  - Muscle spasms [Unknown]
  - Emotional disorder [Unknown]
  - Upper respiratory tract congestion [Unknown]
  - Polyp [Unknown]
  - Fatigue [Unknown]
  - Injection site haemorrhage [Recovered/Resolved]
  - Device use issue [Unknown]
  - Influenza like illness [Unknown]
  - Injection site bruising [Recovered/Resolved]
  - Injection site swelling [Recovered/Resolved]
  - Underdose [Unknown]
  - Injury associated with device [Unknown]

NARRATIVE: CASE EVENT DATE: 20160115
